FAERS Safety Report 18274313 (Version 12)
Quarter: 2021Q2

REPORT INFORMATION
  Report Type: Spontaneous
  Country: US (occurrence: US)
  Receive Date: 20200916
  Receipt Date: 20210528
  Transmission Date: 20210717
  Serious: Yes (Other)
  Sender: FDA-Public Use
  Company Number: US-PFIZER INC-2020355590

PATIENT
  Age: 50 Year
  Sex: Male

DRUGS (11)
  1. BENEFIX [Suspect]
     Active Substance: COAGULATION FACTOR IX RECOMBINANT HUMAN\ISOPROPYL ALCOHOL
     Indication: HAEMORRHAGE
     Dosage: UNK (BENEFIX RT 2000 UNIT, BENEFIX RT 3000 UNIT)
     Dates: start: 201510
  2. CLONIDINE HYDROCHLORIDE. [Concomitant]
     Active Substance: CLONIDINE HYDROCHLORIDE
     Dosage: UNK
  3. BENEFIX [Suspect]
     Active Substance: COAGULATION FACTOR IX RECOMBINANT HUMAN\ISOPROPYL ALCOHOL
     Indication: HAEMORRHAGE
     Dosage: 1 DF
     Dates: start: 20201208, end: 20201208
  4. BENEFIX [Suspect]
     Active Substance: COAGULATION FACTOR IX RECOMBINANT HUMAN\ISOPROPYL ALCOHOL
     Dosage: 1.5 DF
     Dates: start: 20201210
  5. BENEFIX [Suspect]
     Active Substance: COAGULATION FACTOR IX RECOMBINANT HUMAN\ISOPROPYL ALCOHOL
     Dosage: INFUSE ~ 5500 UNITS (+/?10% ) INTRAVENOUSLY AS NEEDED FOR MINOR BLEEDS. MAX OF 12 DOSES PER 30 DAYS.
     Route: 042
  6. BENEFIX [Suspect]
     Active Substance: COAGULATION FACTOR IX RECOMBINANT HUMAN\ISOPROPYL ALCOHOL
     Dosage: 1 DF
     Dates: start: 20201209, end: 20201209
  7. BENEFIX [Suspect]
     Active Substance: COAGULATION FACTOR IX RECOMBINANT HUMAN\ISOPROPYL ALCOHOL
     Dosage: 1 DF
     Dates: start: 20201228, end: 20201228
  8. BENEFIX [Suspect]
     Active Substance: COAGULATION FACTOR IX RECOMBINANT HUMAN\ISOPROPYL ALCOHOL
     Dosage: 3000 IU
  9. BENEFIX [Suspect]
     Active Substance: COAGULATION FACTOR IX RECOMBINANT HUMAN\ISOPROPYL ALCOHOL
     Indication: FACTOR IX DEFICIENCY
     Dosage: INFUSE ~ 5500 UNITS (+/?10% ) INTRAVENOUSLY AS NEEDED FOR MINOR BLEEDS. MAX OF 12 DOSES PER 30 DAYS
     Route: 042
  10. BENEFIX [Suspect]
     Active Substance: COAGULATION FACTOR IX RECOMBINANT HUMAN\ISOPROPYL ALCOHOL
     Indication: FACTOR IX DEFICIENCY
     Dosage: 5500 IU, AS NEEDED (INFUSE ? 5500 UNITS (+/?10%). MAX OF 12 DOSES IN 30DAYS.)
     Route: 042
     Dates: start: 201510
  11. BENEFIX [Suspect]
     Active Substance: COAGULATION FACTOR IX RECOMBINANT HUMAN\ISOPROPYL ALCOHOL
     Dosage: 5500 IU, AS NEEDED (INFUSE ? 5500 UNITS (+/?10%). MAX OF 12 DOSES IN 30DAYS.)
     Route: 042

REACTIONS (5)
  - Haemarthrosis [Unknown]
  - Ear haemorrhage [Unknown]
  - Ear injury [Unknown]
  - Haemorrhage [Unknown]
  - Intestinal haemorrhage [Unknown]

NARRATIVE: CASE EVENT DATE: 202012
